FAERS Safety Report 7249706-X (Version None)
Quarter: 2011Q1

REPORT INFORMATION
  Report Type: 
  Country: None (occurrence: None)
  Receive Date: 20110128
  Receipt Date: 20110128
  Transmission Date: 20110831
  Serious: Yes (Hospitalization, Other)
  Sender: FDA-Public Use
  Company Number: CA-ELI_LILLY_AND_COMPANY-CA201010005353

PATIENT
  Age: 80 Year
  Sex: Female

DRUGS (6)
  1. FORTEO [Suspect]
     Dosage: 20 UG, DAILY (1/D)
     Route: 058
     Dates: start: 20100924, end: 20101016
  2. FURSEMIDE [Concomitant]
  3. METOPROLOL [Concomitant]
  4. RAMIPRIL [Concomitant]
  5. PANTOLOC                           /01263202/ [Concomitant]
  6. FORTEO [Suspect]
     Indication: OSTEOPOROSIS
     Dosage: UNK, UNK
     Dates: start: 20050302

REACTIONS (3)
  - STENT PLACEMENT [None]
  - BONE PAIN [None]
  - PNEUMONIA [None]
